FAERS Safety Report 8328147 (Version 2)
Quarter: 2015Q4

REPORT INFORMATION
  Report Type: Spontaneous
  Country: US (occurrence: US)
  Receive Date: 20120109
  Receipt Date: 20151212
  Transmission Date: 20160305
  Serious: Yes (Other)
  Sender: FDA-Public Use
  Company Number: US-ASTRAZENECA-2011SE78886

PATIENT
  Age: 948 Month
  Sex: Female
  Weight: 68 kg

DRUGS (11)
  1. LYRICA [Suspect]
     Active Substance: PREGABALIN
     Indication: PAIN
     Route: 048
  2. TYLENOL [Concomitant]
     Active Substance: ACETAMINOPHEN
     Indication: ARTHRITIS
     Dosage: TAKES TWO A DAY AS NEEDED
  3. CORTISONE [Suspect]
     Active Substance: CORTISONE\HYDROCORTISONE
     Indication: PAIN IN EXTREMITY
     Route: 065
  4. WARFARIN [Concomitant]
     Active Substance: WARFARIN
     Indication: ANTICOAGULANT THERAPY
     Dosage: STARTED THIS 25 YEARS AGO. DOSE VARIES, 5-7.5 TO 10. TAKES OWN BLOOD WORK AT HOME, ONCE EVERY DAY
  5. CRESTOR [Suspect]
     Active Substance: ROSUVASTATIN CALCIUM
     Indication: BLOOD CHOLESTEROL ABNORMAL
     Dosage: PRESCRIBED TO TAKE 20 MG, BUT SHE TAKES 5 MG OR 10 MG TWO TO THREE TIMES A WEEK
     Route: 048
  6. VITAMINS NOS [Concomitant]
     Active Substance: VITAMINS
     Indication: HAIR DISORDER
  7. ZETIA [Concomitant]
     Active Substance: EZETIMIBE
  8. MAGNESIUM,CALCIUM AND ZINC [Concomitant]
     Indication: HAEMORRHAGE
     Dates: start: 2013
  9. MULTIVITAMIN [Concomitant]
     Active Substance: VITAMINS
     Dosage: CHEWABLE ONCE A DAY
  10. IBANDRONATE SODIUM. [Concomitant]
     Active Substance: IBANDRONATE SODIUM
     Indication: PAIN IN EXTREMITY
     Route: 048
     Dates: start: 20151202
  11. LIPITOR [Concomitant]
     Active Substance: ATORVASTATIN CALCIUM

REACTIONS (14)
  - Back disorder [Not Recovered/Not Resolved]
  - Balance disorder [Not Recovered/Not Resolved]
  - Pain in extremity [Unknown]
  - Eye contusion [Unknown]
  - Wound [Recovering/Resolving]
  - Thrombosis [Unknown]
  - Dizziness [Unknown]
  - Intentional product misuse [Not Recovered/Not Resolved]
  - Fall [Unknown]
  - Back pain [Unknown]
  - Myalgia [Unknown]
  - Head injury [Unknown]
  - Pain in extremity [Unknown]
  - Poor peripheral circulation [Unknown]

NARRATIVE: CASE EVENT DATE: 201506
